FAERS Safety Report 14702660 (Version 1)
Quarter: 2018Q2

REPORT INFORMATION
  Report Type: Spontaneous
  Country: US (occurrence: US)
  Receive Date: 20180402
  Receipt Date: 20180402
  Transmission Date: 20180711
  Serious: No
  Sender: FDA-Public Use
  Company Number: US-ASTRAZENECA-2018SE29695

PATIENT
  Sex: Female

DRUGS (1)
  1. SYMBICORT [Suspect]
     Active Substance: BUDESONIDE\FORMOTEROL FUMARATE DIHYDRATE
     Dosage: 1-2 PUFFS IN A.M. AND 1-2 PUFFS BEFORE I GO TO BED, UNKNOWN UNKNOWN
     Route: 055

REACTIONS (2)
  - Off label use [Unknown]
  - Dyspnoea [Unknown]
